FAERS Safety Report 5349314-1 (Version None)
Quarter: 2007Q2

REPORT INFORMATION
  Report Type: 
  Country: None (occurrence: None)
  Receive Date: 20070607
  Receipt Date: 20070601
  Transmission Date: 20071010
  Serious: Yes (Hospitalization)
  Sender: FDA-Public Use
  Company Number: B0473620A

PATIENT
  Sex: Female

DRUGS (3)
  1. IMIGRAN [Suspect]
     Indication: MIGRAINE
     Route: 065
  2. ESTRADIOL [Concomitant]
  3. SUMATRIPTAN SUCCINATE [Concomitant]

REACTIONS (3)
  - POLLAKIURIA [None]
  - SYNCOPE [None]
  - VERTIGO [None]
